FAERS Safety Report 10432762 (Version 1)
Quarter: 2014Q3

REPORT INFORMATION
  Report Type: Spontaneous
  Country: US (occurrence: None)
  Receive Date: 20140904
  Receipt Date: 20140904
  Transmission Date: 20150326
  Serious: Yes (Life-Threatening, Hospitalization, Disabling)
  Sender: FDA-Public Use
  Company Number: None

PATIENT
  Age: 21 Year
  Sex: Female
  Weight: 56.7 kg

DRUGS (2)
  1. DAPTOMYCIN [Suspect]
     Active Substance: DAPTOMYCIN
     Indication: DEVICE RELATED SEPSIS
     Dosage: 330.0MG, Q 24 HRS, INTRAVENOUS
     Route: 042
     Dates: start: 20140802, end: 20140816
  2. DAPTOMYCIN [Suspect]
     Active Substance: DAPTOMYCIN
     Dosage: 330.0MG, Q 24 HRS, INTRAVENOUS
     Route: 042
     Dates: start: 20140802, end: 20140816

REACTIONS (4)
  - Hyporeflexia [None]
  - Movement disorder [None]
  - Sensory loss [None]
  - Asthenia [None]

NARRATIVE: CASE EVENT DATE: 20140805
